FAERS Safety Report 24171911 (Version 1)
Quarter: 2024Q3

REPORT INFORMATION
  Report Type: Report from Study
  Country: US (occurrence: None)
  Receive Date: 20240805
  Receipt Date: 20240805
  Transmission Date: 20241017
  Serious: Yes (Other)
  Sender: ASTRAZENECA
  Company Number: 2023A246583

PATIENT
  Sex: Male

DRUGS (2)
  1. FASENRA [Suspect]
     Active Substance: BENRALIZUMAB
     Route: 058
  2. CALQUENCE [Concomitant]
     Active Substance: ACALABRUTINIB

REACTIONS (4)
  - Haemoglobin decreased [Unknown]
  - Muscle spasms [Unknown]
  - Fatigue [Unknown]
  - Pruritus [Unknown]
